FAERS Safety Report 19983358 (Version 2)
Quarter: 2021Q4

REPORT INFORMATION
  Report Type: Report from Study
  Country: US (occurrence: US)
  Receive Date: 20211021
  Receipt Date: 20211129
  Transmission Date: 20220303
  Serious: Yes (Other)
  Sender: FDA-Public Use
  Company Number: US-SHIRE-US201932735

PATIENT
  Age: 73 Year
  Sex: Female

DRUGS (2)
  1. HUMAN IMMUNOGLOBULIN G [Suspect]
     Active Substance: HUMAN IMMUNOGLOBULIN G
     Indication: Immunodeficiency common variable
     Dosage: 30 GRAM
     Route: 042
  2. HUMAN IMMUNOGLOBULIN G [Suspect]
     Active Substance: HUMAN IMMUNOGLOBULIN G
     Indication: Immunodeficiency common variable
     Dosage: 30 GRAM
     Route: 042

REACTIONS (10)
  - Diabetes mellitus [Unknown]
  - Loss of consciousness [Unknown]
  - Bronchitis [Not Recovered/Not Resolved]
  - Dyspnoea [Unknown]
  - Incorrect product administration duration [Unknown]
  - Adverse drug reaction [Unknown]
  - Infusion related reaction [Unknown]
  - Immunoglobulins decreased [Unknown]
  - Inappropriate schedule of product administration [Unknown]
  - Product availability issue [Unknown]

NARRATIVE: CASE EVENT DATE: 20200929
